FAERS Safety Report 10509124 (Version 1)
Quarter: 2014Q3

REPORT INFORMATION
  Report Type: Spontaneous
  Country: US (occurrence: None)
  Receive Date: 20140915
  Receipt Date: 20140915
  Transmission Date: 20150326
  Serious: Yes (Hospitalization, Other)
  Sender: FDA-Public Use
  Company Number: 2014-US-000708

PATIENT
  Age: 16 Year
  Sex: Male
  Weight: 46.7 kg

DRUGS (4)
  1. EFFEXOR [Suspect]
     Active Substance: VENLAFAXINE HYDROCHLORIDE
     Indication: CATAPLEXY
     Route: 048
     Dates: start: 201309, end: 201401
  2. MODAFINIL. [Concomitant]
     Active Substance: MODAFINIL
  3. XYREM [Suspect]
     Active Substance: SODIUM OXYBATE
     Indication: NARCOLEPSY
     Route: 048
     Dates: start: 20130927, end: 2013
  4. PAXIL [Concomitant]
     Active Substance: PAROXETINE HYDROCHLORIDE

REACTIONS (5)
  - Depression [None]
  - Decreased appetite [None]
  - Constipation [None]
  - Anxiety [None]
  - Weight decreased [None]

NARRATIVE: CASE EVENT DATE: 2013
